FAERS Safety Report 4428788-4 (Version None)
Quarter: 2004Q3

REPORT INFORMATION
  Report Type: 
  Country: None (occurrence: None)
  Receive Date: 20040816
  Receipt Date: 20040730
  Transmission Date: 20050211
  Serious: Yes (Other)
  Sender: FDA-Public Use
  Company Number: 2004-BP-06434BP

PATIENT
  Age: 70 Year
  Sex: Female

DRUGS (4)
  1. AGGRENOX [Suspect]
     Indication: CEREBROVASCULAR ACCIDENT PROPHYLAXIS
     Dosage: SEE TEXT (SEE TEXT, 25 MG/200 MG (ONE CAPSULE BID), PO
     Route: 048
     Dates: start: 20040726, end: 20040727
  2. ATENOLOL [Concomitant]
  3. GLUCOPHAGE [Concomitant]
  4. LISINOPRIL [Concomitant]

REACTIONS (11)
  - ABDOMINAL PAIN UPPER [None]
  - BREAST PAIN [None]
  - CARDIAC FLUTTER [None]
  - DIARRHOEA [None]
  - DIZZINESS [None]
  - FALL [None]
  - FEELING ABNORMAL [None]
  - HEADACHE [None]
  - HEART RATE IRREGULAR [None]
  - JOINT INJURY [None]
  - NAUSEA [None]
